FAERS Safety Report 23762825 (Version 2)
Quarter: 2024Q2

REPORT INFORMATION
  Report Type: Spontaneous
  Country: GB (occurrence: None)
  Receive Date: 20240419
  Receipt Date: 20240523
  Transmission Date: 20240716
  Serious: Yes (Life-Threatening, Hospitalization, Other)
  Sender: FDA-Public Use
  Company Number: 2024A092942

PATIENT
  Age: 70 Year
  Sex: Female
  Weight: 65 kg

DRUGS (1)
  1. DURVALUMAB [Suspect]
     Active Substance: DURVALUMAB

REACTIONS (1)
  - Mucosal inflammation [Not Recovered/Not Resolved]

NARRATIVE: CASE EVENT DATE: 20240407
